FAERS Safety Report 7423820-8 (Version None)
Quarter: 2011Q1

REPORT INFORMATION
  Report Type: 
  Country: None (occurrence: None)
  Receive Date: 20110330
  Receipt Date: 20110321
  Transmission Date: 20110831
  Serious: Yes (Death)
  Sender: FDA-Public Use
  Company Number: US-145173

PATIENT

DRUGS (1)
  1. WINRHO [Suspect]

REACTIONS (1)
  - DEATH [None]
